FAERS Safety Report 20489616 (Version 1)
Quarter: 2022Q1

REPORT INFORMATION
  Report Type: Spontaneous
  Country: CN (occurrence: CN)
  Receive Date: 20220218
  Receipt Date: 20220218
  Transmission Date: 20220424
  Serious: Yes (Hospitalization, Other)
  Sender: FDA-Public Use
  Company Number: CN-PFIZER INC-202200257067

PATIENT
  Age: 14 Year
  Sex: Female
  Weight: 63 kg

DRUGS (1)
  1. ZOLOFT [Suspect]
     Active Substance: SERTRALINE HYDROCHLORIDE
     Indication: Depression
     Dosage: 400 MG, 1X/DAY
     Route: 048
     Dates: start: 20220111, end: 20220111

REACTIONS (3)
  - Sinus tachycardia [Recovering/Resolving]
  - Muscle contractions involuntary [Recovering/Resolving]
  - Overdose [Recovering/Resolving]

NARRATIVE: CASE EVENT DATE: 20220112
